FAERS Safety Report 8464558-8 (Version None)
Quarter: 2012Q2

REPORT INFORMATION
  Report Type: 
  Country: None (occurrence: None)
  Receive Date: 20120323
  Receipt Date: 20111109
  Transmission Date: 20120825
  Serious: Yes (Hospitalization, Other)
  Sender: FDA-Public Use
  Company Number: 163-21880-11101932

PATIENT
  Age: 76 Year
  Sex: Male

DRUGS (19)
  1. SIMVASTATIN [Concomitant]
  2. TAMSULOSIN HCL [Concomitant]
  3. EPOETIN (EPOETIN ALFA) [Concomitant]
  4. ALLOPURINOL [Concomitant]
  5. NEXIUM [Concomitant]
  6. OMEGA 3 FATTY ACIDS (FISH OIL) [Concomitant]
  7. MEGACE [Concomitant]
  8. PROSCAR [Concomitant]
  9. RENVELA [Concomitant]
  10. VITAMIN E [Concomitant]
  11. KEFLEX [Concomitant]
  12. VITAMIN D [Concomitant]
  13. HIGH DOSE DEXAMETHASONE (DEXAMETHASONE) [Concomitant]
  14. NYSTATIN [Concomitant]
  15. CARAFATE [Concomitant]
  16. VELCADE [Concomitant]
  17. REVLIMID [Suspect]
     Indication: MULTIPLE MYELOMA
     Dosage: 25 MG, DAILY 1-21 OF 28 DAY CYCLE, PO
     Route: 048
     Dates: start: 20110909
  18. PROMETHAZINE [Concomitant]
  19. GABAPENTIN [Concomitant]

REACTIONS (3)
  - PNEUMONIA [None]
  - DIZZINESS [None]
  - SYNCOPE [None]
